FAERS Safety Report 9911659 (Version 3)
Quarter: 2015Q2

REPORT INFORMATION
  Report Type: Report from Study
  Country: FR (occurrence: FR)
  Receive Date: 20140219
  Receipt Date: 20150401
  Transmission Date: 20150821
  Serious: Yes (Hospitalization)
  Sender: FDA-Public Use
  Company Number: PHHY2014FR019886

PATIENT
  Age: 66 Year
  Sex: Female

DRUGS (7)
  1. CERTICAN [Suspect]
     Active Substance: EVEROLIMUS
     Dosage: 3.25 MG, QD
     Route: 048
     Dates: start: 20120502, end: 20120810
  2. CELLCEPT [Suspect]
     Active Substance: MYCOPHENOLATE MOFETIL\MYCOPHENOLATE MOFETIL HYDROCHLORIDE
     Indication: IMMUNOSUPPRESSION
     Route: 065
     Dates: start: 20100402
  3. SOLUPRED [Suspect]
     Active Substance: PREDNISOLONE
     Indication: IMMUNOSUPPRESSION
     Route: 065
     Dates: start: 20101004, end: 20110308
  4. CERTICAN [Suspect]
     Active Substance: EVEROLIMUS
     Dosage: 3.75 MG, DAILY
     Dates: start: 20120810, end: 20140122
  5. CERTICAN [Suspect]
     Active Substance: EVEROLIMUS
     Indication: IMMUNOSUPPRESSION
     Dosage: 2 MG, QD
     Route: 048
     Dates: start: 20110127, end: 20120502
  6. NEORAL [Concomitant]
     Active Substance: CYCLOSPORINE
     Indication: IMMUNOSUPPRESSION
     Route: 065
     Dates: start: 20140115
  7. ADVAGRAF [Suspect]
     Active Substance: TACROLIMUS
     Indication: IMMUNOSUPPRESSION
     Route: 065
     Dates: end: 20120502

REACTIONS (6)
  - Acute kidney injury [Recovered/Resolved]
  - Pyelonephritis [Recovered/Resolved]
  - Pyelonephritis [Recovered/Resolved]
  - Pyelonephritis [Recovered/Resolved]
  - Vesicoureteric reflux [Recovered/Resolved]
  - Pyelonephritis [Recovered/Resolved]

NARRATIVE: CASE EVENT DATE: 20110723
